FAERS Safety Report 5779966-3 (Version None)
Quarter: 2008Q2

REPORT INFORMATION
  Report Type: 
  Country: None (occurrence: None)
  Receive Date: 20080616
  Receipt Date: 20080312
  Transmission Date: 20081010
  Serious: Yes (Other)
  Sender: FDA-Public Use
  Company Number: 08-150

PATIENT
  Age: 76 Year
  Sex: Female
  Weight: 90.7194 kg

DRUGS (5)
  1. ALEVE [Suspect]
     Indication: ARTHRALGIA
     Dosage: 440 MG, DAILY, ORAL
     Route: 048
     Dates: start: 20070308
  2. DIOVAN [Concomitant]
  3. VERAPAMIL [Concomitant]
  4. SIMVASTATIN [Concomitant]
  5. METOPROLOL SUCCINATE [Concomitant]

REACTIONS (1)
  - HAEMATOCHEZIA [None]
